FAERS Safety Report 14203225 (Version 5)
Quarter: 2018Q2

REPORT INFORMATION
  Report Type: Spontaneous
  Country: ES (occurrence: ES)
  Receive Date: 20171120
  Receipt Date: 20180417
  Transmission Date: 20180711
  Serious: Yes (Life-Threatening, Hospitalization, Other)
  Sender: FDA-Public Use
  Company Number: ES-BRISTOL-MYERS SQUIBB COMPANY-BMS-2017-100661

PATIENT
  Age: 72 Year
  Sex: Male

DRUGS (4)
  1. FUROSEMIDE. [Concomitant]
     Active Substance: FUROSEMIDE
     Indication: PRODUCT USED FOR UNKNOWN INDICATION
     Route: 065
  2. IRBESARTAN. [Concomitant]
     Active Substance: IRBESARTAN
     Indication: PRODUCT USED FOR UNKNOWN INDICATION
     Route: 065
  3. METFORMIN HYDROCHLORIDE. [Suspect]
     Active Substance: METFORMIN HYDROCHLORIDE
     Indication: TYPE 2 DIABETES MELLITUS
     Dosage: 850 MG, Q8H
     Route: 065
  4. SINTROM [Concomitant]
     Active Substance: ACENOCOUMAROL
     Indication: PRODUCT USED FOR UNKNOWN INDICATION
     Route: 065

REACTIONS (4)
  - Drug level increased [Recovering/Resolving]
  - Cardio-respiratory arrest [Recovering/Resolving]
  - Lactic acidosis [Recovering/Resolving]
  - Shock [Recovering/Resolving]
